FAERS Safety Report 5057624-0 (Version None)
Quarter: 2006Q3

REPORT INFORMATION
  Report Type: 
  Country: None (occurrence: None)
  Receive Date: 20060721
  Receipt Date: 20051229
  Transmission Date: 20061208
  Serious: No
  Sender: FDA-Public Use
  Company Number: US-GLAXOSMITHKLINE-A0587352A

PATIENT
  Age: 71 Year
  Sex: Female

DRUGS (7)
  1. AVANDIA [Suspect]
     Dosage: 8MG PER DAY
     Route: 048
     Dates: start: 20051121
  2. LABETALOL HCL [Concomitant]
  3. ADALAT [Concomitant]
  4. PLAVIX [Concomitant]
  5. LOTENSIN [Concomitant]
  6. ALBUTEROL SPIROS [Concomitant]
  7. AZMACORT [Concomitant]

REACTIONS (1)
  - ALOPECIA [None]
